FAERS Safety Report 7759357-6 (Version None)
Quarter: 2011Q3

REPORT INFORMATION
  Report Type: 
  Country: None (occurrence: None)
  Receive Date: 20110919
  Receipt Date: 20110906
  Transmission Date: 20111222
  Serious: No
  Sender: FDA-Public Use
  Company Number: US-JNJFOC-20110904113

PATIENT
  Sex: Female
  Weight: 62.6 kg

DRUGS (2)
  1. DURAGESIC-100 [Suspect]
     Indication: FIBROMYALGIA
     Route: 062
  2. FENTANYL-100 [Suspect]
     Indication: FIBROMYALGIA
     Route: 062

REACTIONS (5)
  - RASH [None]
  - SKIN BURNING SENSATION [None]
  - INCORRECT DRUG ADMINISTRATION RATE [None]
  - PRURITUS [None]
  - FEELING ABNORMAL [None]
